FAERS Safety Report 7977039-2 (Version None)
Quarter: 2011Q4

REPORT INFORMATION
  Report Type: 
  Country: None (occurrence: None)
  Receive Date: 20111213
  Receipt Date: 20111114
  Transmission Date: 20120403
  Serious: No
  Sender: FDA-Public Use
  Company Number: US-AMGEN-USASP2011059756

PATIENT
  Age: 44 Year
  Sex: Female

DRUGS (2)
  1. CELEXA [Concomitant]
     Dosage: UNK
  2. ENBREL [Suspect]
     Indication: PSORIASIS
     Dosage: 50 MG, Q2WK
     Dates: start: 20111001

REACTIONS (5)
  - PSORIASIS [None]
  - PRURITUS [None]
  - HEADACHE [None]
  - NAUSEA [None]
  - VOMITING [None]
